FAERS Safety Report 14182722 (Version 1)
Quarter: 2017Q4

REPORT INFORMATION
  Report Type: Spontaneous
  Country: JP (occurrence: JP)
  Receive Date: 20171113
  Receipt Date: 20171113
  Transmission Date: 20180321
  Serious: Yes (Hospitalization)
  Sender: FDA-Public Use
  Company Number: JP-TEVA-824831ROM

PATIENT
  Age: 75 Year
  Sex: Female

DRUGS (14)
  1. CLOPIDOGREL [Suspect]
     Active Substance: CLOPIDOGREL BISULFATE
     Dosage: 75 MG ON THE DAY OF SURGERY IN THE MORNING
     Route: 048
  2. PROPOFOL. [Concomitant]
     Active Substance: PROPOFOL
     Indication: GENERAL ANAESTHESIA
     Route: 050
  3. OXYGEN. [Concomitant]
     Active Substance: OXYGEN
     Dosage: CONCENTRATION OF 37%
     Route: 055
  4. PHENYLEPHRINE [Concomitant]
     Active Substance: PHENYLEPHRINE\PHENYLEPHRINE HYDROCHLORIDE
     Dosage: 0.4-0.5 MG/HOUR
  5. ASPIRIN. [Suspect]
     Active Substance: ASPIRIN
     Dosage: 200 MG ON THE DAY BEFORE SURGERY
     Route: 048
  6. ASPIRIN. [Suspect]
     Active Substance: ASPIRIN
     Dosage: 100 MG ON THE DAY OF SURGERY IN THE MORNING
     Route: 048
  7. HEPARIN [Suspect]
     Active Substance: HEPARIN SODIUM
     Dosage: 400 UNITS ADMINISTERED AT THE BEGINNING OF SURGERY
     Route: 042
  8. ARGATROBAN. [Suspect]
     Active Substance: ARGATROBAN
     Dosage: 0.8 MICROG/KG/MIN WAS STARTED ON COMPLETION OF SURGERY
     Route: 050
  9. CLOPIDOGREL [Suspect]
     Active Substance: CLOPIDOGREL BISULFATE
     Dosage: 300 MG ON THE DAY BEFORE SURGERY
     Route: 048
  10. HEPARIN [Suspect]
     Active Substance: HEPARIN SODIUM
     Dosage: 500 UNITS ADMINISTERED DURING THE SURGERY
     Route: 042
  11. ROCURONIUM BROMIDE. [Concomitant]
     Active Substance: ROCURONIUM BROMIDE
     Indication: GENERAL ANAESTHESIA
     Dosage: 50 MG
     Route: 065
  12. REMIFENTANIL [Concomitant]
     Active Substance: REMIFENTANIL
     Indication: GENERAL ANAESTHESIA
     Dosage: 0.1 MICROG/KG/MIN
     Route: 050
  13. FENTANYL. [Concomitant]
     Active Substance: FENTANYL
     Indication: GENERAL ANAESTHESIA
     Dosage: 100 MICROG 10 MIN BEFORE SURGERY COMPLETION
     Route: 065
  14. REMIFENTANIL [Concomitant]
     Active Substance: REMIFENTANIL
     Indication: GENERAL ANAESTHESIA
     Dosage: 0.5 MICROG/KG/MIN
     Route: 050

REACTIONS (3)
  - Oesophageal intramural haematoma [Recovering/Resolving]
  - Shock haemorrhagic [Recovering/Resolving]
  - Haematemesis [Recovering/Resolving]
